FAERS Safety Report 15173787 (Version 2)
Quarter: 2018Q4

REPORT INFORMATION
  Report Type: Report from Study
  Country: US (occurrence: US)
  Receive Date: 20180720
  Receipt Date: 20181017
  Transmission Date: 20190204
  Serious: No
  Sender: FDA-Public Use
  Company Number: US-AMGEN-USASL2018071619

PATIENT
  Age: 69 Year
  Sex: Male
  Weight: 77.98 kg

DRUGS (2)
  1. COQ10 [Concomitant]
     Active Substance: UBIDECARENONE
     Dosage: 100 MG, TID
     Dates: start: 20160223
  2. REPATHA [Suspect]
     Active Substance: EVOLOCUMAB
     Indication: LOW DENSITY LIPOPROTEIN INCREASED
     Dosage: 140 MG/ML, Q2WK
     Route: 058
     Dates: start: 20170720

REACTIONS (4)
  - Rash [Not Recovered/Not Resolved]
  - Erectile dysfunction [Not Recovered/Not Resolved]
  - Blood calcium increased [Unknown]
  - Hypertension [Unknown]

NARRATIVE: CASE EVENT DATE: 2017
